FAERS Safety Report 10039889 (Version 1)
Quarter: 2014Q1

REPORT INFORMATION
  Report Type: Spontaneous
  Country: US (occurrence: US)
  Receive Date: 20140326
  Receipt Date: 20140326
  Transmission Date: 20141002
  Serious: No
  Sender: FDA-Public Use
  Company Number: US-JNJFOC-20140311595

PATIENT
  Age: 40 Year
  Sex: Female

DRUGS (9)
  1. FENTANYL TRANSDERMAL SYSTEM [Suspect]
     Indication: PAIN
     Route: 062
     Dates: start: 20140226
  2. FENTANYL TRANSDERMAL SYSTEM [Suspect]
     Indication: PAIN
     Route: 062
     Dates: start: 201312, end: 201402
  3. LYRICA [Concomitant]
     Indication: FIBROMYALGIA
     Route: 048
  4. BACLOFEN [Concomitant]
     Indication: FIBROMYALGIA
     Route: 048
  5. XODOL [Concomitant]
     Indication: PAIN
     Dosage: 10 MG TO 300 MG
     Route: 048
  6. PRO AIR [Concomitant]
     Indication: ASTHMA
     Dosage: 2 PUFFS
     Route: 045
  7. VITAMIN B12 [Concomitant]
     Indication: VITAMIN B12 DEFICIENCY
     Route: 048
     Dates: start: 20140311
  8. VITAMIN D2 [Concomitant]
     Indication: VITAMIN D DEFICIENCY
     Dosage: 1.25 MG 6000UNITS
     Route: 048
     Dates: start: 20140311
  9. PRAVASTATIN SODIUM [Concomitant]
     Indication: BLOOD CHOLESTEROL INCREASED
     Route: 048
     Dates: start: 20140311

REACTIONS (8)
  - Pain [Not Recovered/Not Resolved]
  - Wrong technique in drug usage process [Unknown]
  - Drug dose omission [Unknown]
  - Influenza [Unknown]
  - Poor quality drug administered [Unknown]
  - Product quality issue [Unknown]
  - Product quality issue [Unknown]
  - Product quality issue [Unknown]
